FAERS Safety Report 7162217-5 (Version None)
Quarter: 2010Q4

REPORT INFORMATION
  Report Type: 
  Country: None (occurrence: None)
  Receive Date: 20101215
  Receipt Date: 20090925
  Transmission Date: 20110411
  Serious: Yes (Other)
  Sender: FDA-Public Use
  Company Number: US-PFIZER INC-2009240796

PATIENT
  Sex: Female
  Weight: 72.562 kg

DRUGS (5)
  1. LYRICA [Suspect]
     Indication: NEUROPATHY PERIPHERAL
     Dosage: 25 MG, 1X/DAY
     Dates: start: 20090527
  2. LYRICA [Suspect]
     Indication: INJURY
  3. NEURONTIN [Suspect]
  4. CYMBALTA [Suspect]
  5. LEVOTHYROXINE SODIUM [Concomitant]
     Indication: THYROID DISORDER
     Dosage: UNK

REACTIONS (4)
  - BRAIN OPERATION [None]
  - DRUG INEFFECTIVE [None]
  - MALAISE [None]
  - VISION BLURRED [None]
